FAERS Safety Report 21770715 (Version 1)
Quarter: 2022Q4

REPORT INFORMATION
  Report Type: Spontaneous
  Country: ES (occurrence: None)
  Receive Date: 20221223
  Receipt Date: 20221223
  Transmission Date: 20230113
  Serious: Yes (Hospitalization, Other)
  Sender: FDA-Public Use
  Company Number: ES-Unichem Pharmaceuticals (USA) Inc-UCM202212-001351

PATIENT
  Age: 63 Year

DRUGS (11)
  1. QUETIAPINE [Suspect]
     Active Substance: QUETIAPINE
     Indication: Histrionic personality disorder
     Dosage: UNKNOWN
  2. CELECOXIB [Concomitant]
     Active Substance: CELECOXIB
     Indication: Histrionic personality disorder
     Dosage: UNKNOWN
  3. VENLAFAXINE [Concomitant]
     Active Substance: VENLAFAXINE HYDROCHLORIDE
     Indication: Histrionic personality disorder
     Dosage: UNKNOWN
  4. DIAZEPAM [Concomitant]
     Active Substance: DIAZEPAM
     Indication: Histrionic personality disorder
     Dosage: UNKNOWN
  5. FENTANYL [Concomitant]
     Active Substance: FENTANYL
     Indication: Histrionic personality disorder
     Dosage: UNKNOWN
  6. RUPATADINE [Concomitant]
     Active Substance: RUPATADINE
     Indication: Histrionic personality disorder
     Dosage: UNKNOWN
  7. CINITAPRIDE [Concomitant]
     Active Substance: CINITAPRIDE
     Indication: Histrionic personality disorder
     Dosage: UNKNOWN
  8. OMEPRAZOLE [Concomitant]
     Active Substance: OMEPRAZOLE
     Indication: Histrionic personality disorder
     Dosage: UNKNOWN
  9. LEVOSULPIRIDE [Concomitant]
     Active Substance: LEVOSULPIRIDE
     Indication: Histrionic personality disorder
     Dosage: UNKNOWN
  10. SIMVASTATIN [Concomitant]
     Active Substance: SIMVASTATIN
     Indication: Histrionic personality disorder
     Dosage: UNKNOWN
  11. FLUTICASONE PROPIONATE\SALMETEROL XINAFOATE [Concomitant]
     Active Substance: FLUTICASONE PROPIONATE\SALMETEROL XINAFOATE
     Indication: Histrionic personality disorder
     Dosage: UNKNOWN

REACTIONS (2)
  - Colitis ischaemic [Recovered/Resolved]
  - Product use in unapproved indication [Unknown]
